FAERS Safety Report 25629361 (Version 2)
Quarter: 2025Q4

REPORT INFORMATION
  Report Type: Spontaneous
  Country: EU (occurrence: EU)
  Receive Date: 20250731
  Receipt Date: 20251121
  Transmission Date: 20260118
  Serious: Yes (Life-Threatening, Hospitalization, Other)
  Sender: MYLAN
  Company Number: None

PATIENT
  Age: 32 Year
  Sex: Female
  Weight: 47 kg

DRUGS (2)
  1. ZOLOFT [Suspect]
     Active Substance: SERTRALINE HYDROCHLORIDE
     Indication: Depression
     Dosage: 25 MILLIGRAM, QD, USED VARYING DOSES SINCE 2011, WITH HIGHEST DOSE 100 MG AND 25 MG
     Dates: start: 201110
  2. Zonat [Concomitant]
     Indication: Insomnia
     Dosage: 25 MILLIGRAM, QD
     Dates: start: 202504, end: 202509

REACTIONS (12)
  - Suicidal ideation [Not Recovered/Not Resolved]
  - Suicide attempt [Not Recovered/Not Resolved]
  - Sleep disorder [Not Recovered/Not Resolved]
  - Poor quality sleep [Not Recovered/Not Resolved]
  - Initial insomnia [Not Recovered/Not Resolved]
  - Panic reaction [Unknown]
  - Tachyphrenia [Not Recovered/Not Resolved]
  - Movement disorder [Unknown]
  - Restlessness [Not Recovered/Not Resolved]
  - Depersonalisation/derealisation disorder [Unknown]
  - Weight decreased [Not Recovered/Not Resolved]
  - Tremor [Not Recovered/Not Resolved]

NARRATIVE: CASE EVENT DATE: 20250301
